FAERS Safety Report 5444614-9 (Version None)
Quarter: 2007Q3

REPORT INFORMATION
  Report Type: 
  Country: None (occurrence: None)
  Receive Date: 20070906
  Receipt Date: 20061102
  Transmission Date: 20080115
  Serious: Yes (Life-Threatening, Other)
  Sender: FDA-Public Use
  Company Number: GB-AVENTIS-200621394GDDC

PATIENT
  Age: 73 Year
  Sex: Male

DRUGS (1)
  1. ARAVA [Suspect]
     Route: 048
     Dates: start: 20060310, end: 20060731

REACTIONS (2)
  - DYSPNOEA [None]
  - LIVER FUNCTION TEST ABNORMAL [None]
